FAERS Safety Report 24741656 (Version 2)
Quarter: 2025Q1

REPORT INFORMATION
  Report Type: Spontaneous
  Country: JP (occurrence: JP)
  Receive Date: 20241217
  Receipt Date: 20250106
  Transmission Date: 20250409
  Serious: Yes (Hospitalization)
  Sender: GLAXOSMITHKLINE
  Company Number: JP-GSKJP-JP2024JPN155730AA

PATIENT

DRUGS (4)
  1. DAPRODUSTAT [Suspect]
     Active Substance: DAPRODUSTAT
  2. DAPRODUSTAT [Suspect]
     Active Substance: DAPRODUSTAT
  3. DARBEPOETIN ALFA [Suspect]
     Active Substance: DARBEPOETIN ALFA
  4. DARBEPOETIN ALFA [Suspect]
     Active Substance: DARBEPOETIN ALFA

REACTIONS (1)
  - Hospitalisation [Unknown]
